FAERS Safety Report 14530779 (Version 1)
Quarter: 2018Q1

REPORT INFORMATION
  Report Type: Report from Study
  Country: CO (occurrence: CO)
  Receive Date: 20180214
  Receipt Date: 20180214
  Transmission Date: 20180509
  Serious: Yes (Death, Hospitalization)
  Sender: FDA-Public Use
  Company Number: PHHY2018CO023161

PATIENT
  Age: 56 Year
  Sex: Female

DRUGS (1)
  1. AFINITOR [Suspect]
     Active Substance: EVEROLIMUS
     Indication: BREAST CANCER
     Dosage: 10 MG, QD (ONCE DAILY)
     Route: 048
     Dates: start: 20171007

REACTIONS (8)
  - Feeding disorder [Unknown]
  - Pulmonary infarction [Fatal]
  - Breast cancer [Unknown]
  - Lung disorder [Unknown]
  - Malaise [Unknown]
  - Pleural effusion [Unknown]
  - Breast cancer metastatic [Unknown]
  - Myocardial infarction [Fatal]

NARRATIVE: CASE EVENT DATE: 20171223
